FAERS Safety Report 5216657-1 (Version None)
Quarter: 2006Q4

REPORT INFORMATION
  Report Type: 
  Country: None (occurrence: None)
  Receive Date: 20061130
  Receipt Date: 20060807
  Transmission Date: 20070319
  Serious: Yes (Hospitalization, Disabling)
  Sender: FDA-Public Use
  Company Number: US_0511123859

PATIENT
  Age: 48 Year
  Sex: Female
  Weight: 64.9 kg

DRUGS (3)
  1. ZYPREXA [Suspect]
     Indication: POST-TRAUMATIC STRESS DISORDER
     Dosage: 15 MG
     Dates: start: 19981201, end: 20040501
  2. REGULAR INSULIN [Concomitant]
  3. LANTUS [Concomitant]

REACTIONS (8)
  - CONFUSIONAL STATE [None]
  - DIABETES MELLITUS [None]
  - DYSARTHRIA [None]
  - EMOTIONAL DISTRESS [None]
  - HEMIPLEGIA [None]
  - METABOLIC DISORDER [None]
  - WEIGHT DECREASED [None]
  - WEIGHT INCREASED [None]
